FAERS Safety Report 4862850-7 (Version None)
Quarter: 2005Q4

REPORT INFORMATION
  Report Type: 
  Country: None (occurrence: None)
  Receive Date: 20051221
  Receipt Date: 20051219
  Transmission Date: 20060501
  Serious: Yes (Other)
  Sender: FDA-Public Use
  Company Number: US-BRACCO-BDI-007803

PATIENT
  Sex: Female

DRUGS (1)
  1. ISOVUE-128 [Suspect]
     Route: 042

REACTIONS (2)
  - EXTRAVASATION [None]
  - NECROSIS [None]
